FAERS Safety Report 7655606-3 (Version None)
Quarter: 2011Q3

REPORT INFORMATION
  Report Type: 
  Country: None (occurrence: None)
  Receive Date: 20110804
  Receipt Date: 20100406
  Transmission Date: 20111222
  Serious: No
  Sender: FDA-Public Use
  Company Number: US-BAYER-201019670NA

PATIENT
  Sex: Female

DRUGS (1)
  1. MIRENA [Suspect]
     Indication: CONTRACEPTION
     Dosage: 20 ?G, CONT
     Route: 015
     Dates: start: 20090831

REACTIONS (6)
  - PAIN [None]
  - MEDICAL DEVICE COMPLICATION [None]
  - WEIGHT INCREASED [None]
  - COITAL BLEEDING [None]
  - FATIGUE [None]
  - MENSTRUATION IRREGULAR [None]
